FAERS Safety Report 9361690 (Version 2)
Quarter: 2013Q3

REPORT INFORMATION
  Report Type: Spontaneous
  Country: FR (occurrence: FR)
  Receive Date: 20130621
  Receipt Date: 20130822
  Transmission Date: 20140515
  Serious: Yes (Other)
  Sender: FDA-Public Use
  Company Number: PHHY2013FR063476

PATIENT
  Age: 61 Year
  Sex: Female

DRUGS (8)
  1. ACLASTA [Suspect]
     Indication: OSTEOPOROSIS
     Dosage: 5 MG, ANNUALLY
     Route: 042
     Dates: start: 2009
  2. ACLASTA [Suspect]
     Dosage: 5 MG, ANNUALLY
     Route: 042
     Dates: start: 2010
  3. ACLASTA [Suspect]
     Dosage: 5 MG, ANNUALLY
     Route: 042
     Dates: start: 201107
  4. TAHOR [Concomitant]
     Dosage: 20 MG, QD
  5. KARDEGIC [Concomitant]
  6. CALPEROS [Concomitant]
  7. UVEDOSE [Concomitant]
  8. MOPRAL [Concomitant]
     Dosage: UNK
     Dates: end: 201301

REACTIONS (1)
  - Glomerulonephritis membranous [Recovered/Resolved]
